FAERS Safety Report 7708783-X (Version None)
Quarter: 2011Q3

REPORT INFORMATION
  Report Type: 
  Country: None (occurrence: None)
  Receive Date: 20110824
  Receipt Date: 20110824
  Transmission Date: 20111222
  Serious: Yes (Hospitalization)
  Sender: FDA-Public Use
  Company Number: None

PATIENT
  Sex: Female
  Weight: 60.9 kg

DRUGS (6)
  1. HERCEPTIN [Suspect]
     Dosage: 232 MG
     Dates: end: 20110822
  2. DOCETAXEL [Suspect]
     Dosage: 99 MG
     Dates: end: 20110822
  3. PROMETHAZINE [Concomitant]
  4. ATIVAN [Concomitant]
  5. VICODIN [Concomitant]
  6. CARBOPLATIN [Suspect]
     Dosage: 568 MG
     Dates: end: 20110822

REACTIONS (3)
  - PYREXIA [None]
  - CHILLS [None]
  - HEPATIC ENZYME INCREASED [None]
